FAERS Safety Report 20443565 (Version 1)
Quarter: 2022Q1

REPORT INFORMATION
  Report Type: Spontaneous
  Country: US (occurrence: None)
  Receive Date: 20220207
  Receipt Date: 20220207
  Transmission Date: 20220423
  Serious: Yes (Disabling)
  Sender: FDA-Public Use
  Company Number: None

PATIENT
  Age: 53 Year
  Sex: Female
  Weight: 70.8 kg

DRUGS (11)
  1. HUMIRA [Suspect]
     Active Substance: ADALIMUMAB
     Indication: Rheumatoid arthritis
     Dosage: OTHER FREQUENCY : EVERY 7 DAYS;?
     Route: 058
  2. AIMOVIG [Concomitant]
     Active Substance: ERENUMAB-AOOE
  3. Butalbital-APAP-caffeine 50-325-40mg [Concomitant]
  4. Diclofenac 1.3% patch [Concomitant]
  5. Hydroxyzine 50mg [Concomitant]
  6. LORAZEPAM [Concomitant]
     Active Substance: LORAZEPAM
  7. PREDNISONE [Concomitant]
     Active Substance: PREDNISONE
  8. PREGABALIN [Concomitant]
     Active Substance: PREGABALIN
  9. RIZATRIPTAN [Concomitant]
     Active Substance: RIZATRIPTAN
  10. ROSUVASTATIN [Concomitant]
     Active Substance: ROSUVASTATIN
  11. ACETAMINOPHEN [Concomitant]
     Active Substance: ACETAMINOPHEN

REACTIONS (2)
  - Neuropathy peripheral [None]
  - Peripheral sensory neuropathy [None]

NARRATIVE: CASE EVENT DATE: 20220204
